FAERS Safety Report 4560862-4 (Version None)
Quarter: 2005Q1

REPORT INFORMATION
  Report Type: 
  Country: None (occurrence: None)
  Receive Date: 20050121
  Receipt Date: 20050108
  Transmission Date: 20050727
  Serious: Yes (Hospitalization)
  Sender: FDA-Public Use
  Company Number: PL-2005-000219

PATIENT
  Age: 66 Year
  Sex: Female

DRUGS (1)
  1. ULTRAVIST 370 [Suspect]
     Indication: UROGRAPHY
     Dosage: 85 ML, INTRAVENOUS
     Route: 042
     Dates: start: 20050106, end: 20050106

REACTIONS (1)
  - ANAPHYLACTIC SHOCK [None]
